FAERS Safety Report 12104254 (Version 2)
Quarter: 2016Q2

REPORT INFORMATION
  Report Type: Spontaneous
  Country: GB (occurrence: GB)
  Receive Date: 20160223
  Receipt Date: 20160428
  Transmission Date: 20160815
  Serious: Yes (Death)
  Sender: FDA-Public Use
  Company Number: GB-TEVA-637545ISR

PATIENT
  Sex: Male

DRUGS (7)
  1. MORPHINE [Suspect]
     Active Substance: MORPHINE
  2. NORDIAZEPAM [Suspect]
     Active Substance: NORDAZEPAM
  3. CODEINE [Suspect]
     Active Substance: CODEINE
  4. OXAZEPAM. [Suspect]
     Active Substance: OXAZEPAM
  5. DIAZEPAM. [Suspect]
     Active Substance: DIAZEPAM
  6. TEMAZEPAM. [Suspect]
     Active Substance: TEMAZEPAM
  7. ETHYLPHENIDATE [Suspect]
     Active Substance: ETHYLPHENIDATE

REACTIONS (1)
  - Toxicity to various agents [Fatal]
